FAERS Safety Report 23472215 (Version 1)
Quarter: 2024Q1

REPORT INFORMATION
  Report Type: Spontaneous
  Country: US (occurrence: None)
  Receive Date: 20240202
  Receipt Date: 20240202
  Transmission Date: 20240410
  Serious: No
  Sender: FDA-Public Use
  Company Number: None

PATIENT
  Age: 99 Year
  Sex: Male
  Weight: 62.55 kg

DRUGS (15)
  1. PAXLOVID [Suspect]
     Active Substance: NIRMATRELVIR\RITONAVIR
     Indication: COVID-19
     Dosage: FREQUENCY : TWICE A DAY;?
     Route: 048
     Dates: start: 20240129, end: 20240131
  2. DULOXETINE [Concomitant]
     Active Substance: DULOXETINE
  3. CELEBREX [Concomitant]
     Active Substance: CELECOXIB
  4. NEXIUM [Concomitant]
     Active Substance: ESOMEPRAZOLE MAGNESIUM
  5. Liotyronine [Concomitant]
  6. CLARITIN [Concomitant]
     Active Substance: LORATADINE
  7. FISH OIL [Concomitant]
     Active Substance: FISH OIL
  8. VITAMIN A [Concomitant]
     Active Substance: VITAMIN A
  9. VITAMIN D3 [Concomitant]
     Active Substance: CHOLECALCIFEROL
  10. VITAMIN B COMPLEX [Concomitant]
     Active Substance: CYANOCOBALAMIN\DEXPANTHENOL\NIACINAMIDE\PYRIDOXINE HYDROCHLORIDE\RIBOFLAVIN 5^-PHOSPHATE SODIUM\THIA
  11. AREDS vitamin [Concomitant]
  12. HU58 spore probiotic [Concomitant]
  13. Prebiotic [Concomitant]
  14. TYLENOL [Concomitant]
     Active Substance: ACETAMINOPHEN
  15. ACETYLCYSTEINE [Concomitant]
     Active Substance: ACETYLCYSTEINE

REACTIONS (3)
  - Delirium [None]
  - Confusional state [None]
  - Irritability [None]

NARRATIVE: CASE EVENT DATE: 20240130
